FAERS Safety Report 4615052-3 (Version None)
Quarter: 2005Q1

REPORT INFORMATION
  Report Type: 
  Country: None (occurrence: None)
  Receive Date: 20050322
  Receipt Date: 20050308
  Transmission Date: 20050727
  Serious: Yes (Other)
  Sender: FDA-Public Use
  Company Number: US-GLAXOSMITHKLINE-A0548997A

PATIENT
  Age: 68 Year
  Sex: Female
  Weight: 69 kg

DRUGS (4)
  1. CITRUCEL SUSPENSION ORANGE [Suspect]
     Indication: GASTROINTESTINAL DISORDER
     Route: 048
     Dates: start: 19990101
  2. TOPROL-XL [Concomitant]
     Indication: HYPERTENSION
     Route: 048
  3. SPIRONOLACTONE [Concomitant]
     Indication: HYPERTENSION
     Route: 048
  4. NEXIUM [Concomitant]
     Route: 048

REACTIONS (1)
  - GLUCOSE TOLERANCE IMPAIRED [None]
